FAERS Safety Report 7310883-3 (Version None)
Quarter: 2011Q1

REPORT INFORMATION
  Report Type: 
  Country: None (occurrence: None)
  Receive Date: 20110224
  Receipt Date: 20110217
  Transmission Date: 20110831
  Serious: No
  Sender: FDA-Public Use
  Company Number: US-US-EMD SERONO, INC.-7025455

PATIENT
  Sex: Male

DRUGS (2)
  1. NAPROXEN [Concomitant]
     Indication: PAIN
  2. REBIF [Suspect]
     Indication: MULTIPLE SCLEROSIS
     Route: 058
     Dates: start: 20100602

REACTIONS (1)
  - INFLUENZA LIKE ILLNESS [None]
